FAERS Safety Report 10162778 (Version 1)
Quarter: 2014Q2

REPORT INFORMATION
  Report Type: Spontaneous
  Country: US (occurrence: US)
  Receive Date: 20140509
  Receipt Date: 20140509
  Transmission Date: 20141212
  Serious: No
  Sender: FDA-Public Use
  Company Number: US-TEVA-480449USA

PATIENT
  Age: 60 Year
  Sex: Female
  Weight: 104.42 kg

DRUGS (1)
  1. QVAR [Suspect]
     Indication: ASTHMA
     Route: 045

REACTIONS (3)
  - Candida infection [Unknown]
  - Glossitis [Unknown]
  - Dysphagia [Unknown]
